FAERS Safety Report 10598626 (Version 1)
Quarter: 2014Q4

REPORT INFORMATION
  Report Type: Spontaneous
  Country: DK (occurrence: AU)
  Receive Date: 20141121
  Receipt Date: 20141121
  Transmission Date: 20150529
  Serious: Yes (Other)
  Sender: FDA-Public Use
  Company Number: AU-FRI-1000072582

PATIENT
  Age: 60 Year
  Sex: Male

DRUGS (1)
  1. ESCITALOPRAM [Suspect]
     Active Substance: ESCITALOPRAM OXALATE
     Dosage: 5 MG
     Route: 048
     Dates: start: 20140909, end: 20140912

REACTIONS (5)
  - Tremor [Unknown]
  - Depressed level of consciousness [Unknown]
  - Vertigo [Unknown]
  - Asthenopia [Unknown]
  - Nausea [Unknown]

NARRATIVE: CASE EVENT DATE: 20140910
